FAERS Safety Report 5039668-8 (Version None)
Quarter: 2006Q2

REPORT INFORMATION
  Report Type: 
  Country: None (occurrence: None)
  Receive Date: 20060629
  Receipt Date: 20060519
  Transmission Date: 20061013
  Serious: Yes (Disabling, Other)
  Sender: FDA-Public Use
  Company Number: US-MERCK-0605USA04064

PATIENT
  Age: 63 Year
  Sex: Female
  Weight: 58 kg

DRUGS (12)
  1. FOSAMAX [Suspect]
     Indication: OSTEOPOROSIS
     Route: 048
     Dates: start: 20021001, end: 20060615
  2. POTASSIUM (UNSPECIFIED) [Concomitant]
     Route: 065
  3. ISORDIL [Concomitant]
     Route: 065
  4. PREVACID [Concomitant]
     Route: 065
  5. DIGITEK [Concomitant]
     Route: 065
  6. COZAAR [Concomitant]
     Route: 048
  7. FUROSEMIDE [Concomitant]
     Route: 065
  8. DIAZEPAM [Concomitant]
     Route: 065
  9. HYDROCORTONE [Concomitant]
     Route: 048
  10. NORVASC [Concomitant]
     Route: 065
  11. PRAVACHOL [Concomitant]
     Route: 065
  12. PAROXETINE HYDROCHLORIDE [Concomitant]
     Route: 065

REACTIONS (5)
  - ARTHRALGIA [None]
  - BACK PAIN [None]
  - DRUG DOSE OMISSION [None]
  - EXOSTOSIS [None]
  - PAIN IN EXTREMITY [None]
